FAERS Safety Report 5045712-4 (Version None)
Quarter: 2006Q2

REPORT INFORMATION
  Report Type: 
  Country: None (occurrence: None)
  Receive Date: 20060601
  Receipt Date: 20060223
  Transmission Date: 20061013
  Serious: No
  Sender: FDA-Public Use
  Company Number: US200602004952

PATIENT
  Age: 56 Year
  Sex: Male

DRUGS (11)
  1. CYMBALTA [Suspect]
     Indication: DEPRESSION
     Dosage: 90 MG, DAILY (1/D), ORAL
     Route: 048
     Dates: start: 20050601
  2. INTERFERON (INTERFERON) [Concomitant]
  3. CLONAZEPAM [Concomitant]
  4. HYDROCODONE BITARTRATE + ACETAMINOPHEN [Concomitant]
  5. FLUMADINE [Concomitant]
  6. LASIX [Concomitant]
  7. METOPROLOL (METOPROLOL) [Concomitant]
  8. DOXAZOSIN (DOXAZOSIN) [Concomitant]
  9. ZOCOR [Concomitant]
  10. LISINOPRIL [Concomitant]
  11. QUETIAPINE FUMARATE [Concomitant]

REACTIONS (3)
  - CONSTIPATION [None]
  - DIARRHOEA [None]
  - STOMACH DISCOMFORT [None]
